FAERS Safety Report 5212557-1 (Version None)
Quarter: 2007Q1

REPORT INFORMATION
  Report Type: 
  Country: None (occurrence: None)
  Receive Date: 20070118
  Receipt Date: 20070110
  Transmission Date: 20070707
  Serious: Yes (Hospitalization)
  Sender: FDA-Public Use
  Company Number: FR-MERCK-0701FRA00029

PATIENT
  Age: 77 Year
  Sex: Male

DRUGS (5)
  1. ZOCOR [Suspect]
     Indication: HYPERCHOLESTEROLAEMIA
     Route: 048
     Dates: start: 20020301, end: 20061211
  2. ISRADIPINE [Concomitant]
     Route: 048
     Dates: end: 20061207
  3. ACENOCOUMAROL [Concomitant]
     Route: 048
     Dates: start: 20000101
  4. NADOLOL [Concomitant]
     Route: 065
  5. ACETAMINOPHEN [Concomitant]
     Route: 048

REACTIONS (1)
  - INTERSTITIAL LUNG DISEASE [None]
